FAERS Safety Report 4640872-9 (Version None)
Quarter: 2005Q2

REPORT INFORMATION
  Report Type: 
  Country: None (occurrence: None)
  Receive Date: 20050324
  Receipt Date: 20041217
  Transmission Date: 20051028
  Serious: Yes (Hospitalization)
  Sender: FDA-Public Use
  Company Number: 211215

PATIENT
  Age: 77 Year
  Sex: Female
  Weight: 82.3 kg

DRUGS (11)
  1. AVASTIN [Suspect]
     Indication: COLON CANCER
     Dosage: 450 MG, Q2W, INTRAVENOUS
     Route: 042
     Dates: start: 20040628, end: 20040927
  2. CELEBREX [Concomitant]
  3. LOTREL (BENAZEPRIL HYDROCHLORIDE, AMLODIPINE BESYLATE) [Concomitant]
  4. LIPITOR [Concomitant]
  5. LOMOTIL [Concomitant]
  6. PREVACID [Concomitant]
  7. DECADRON EYE DROPS (DEXAMETHASONE) [Concomitant]
  8. IMODIUM [Concomitant]
  9. FOLIC ACID [Concomitant]
  10. CENTRUM SILVER (MINERALS NOS, MULTIVITAMINS NOS) [Concomitant]
  11. COMPAZINE [Concomitant]

REACTIONS (1)
  - MYOCARDIAL INFARCTION [None]
